FAERS Safety Report 25596450 (Version 1)
Quarter: 2025Q3

REPORT INFORMATION
  Report Type: Spontaneous
  Country: US (occurrence: None)
  Receive Date: 20250722
  Receipt Date: 20250722
  Transmission Date: 20251021
  Serious: Yes (Disabling, Other)
  Sender: FDA-CTU
  Company Number: None

PATIENT
  Age: 24 Year
  Sex: Female
  Weight: 91.35 kg

DRUGS (3)
  1. BACLOFEN [Suspect]
     Active Substance: BACLOFEN
     Indication: Cerebral palsy
     Dosage: 1 TABLET(S) 3 TIMES A DAY ORAL
     Route: 048
  2. BACLOFEN [Suspect]
     Active Substance: BACLOFEN
     Indication: Dystonia
  3. Baclofen Mesalamine [Concomitant]

REACTIONS (9)
  - Abdominal pain upper [None]
  - Tremor [None]
  - Anal incontinence [None]
  - Sleep disorder [None]
  - Product dispensing error [None]
  - Wrong product administered [None]
  - Cerebral palsy [None]
  - Dystonia [None]
  - Irritable bowel syndrome [None]

NARRATIVE: CASE EVENT DATE: 20250722
